FAERS Safety Report 21081189 (Version 12)
Quarter: 2023Q4

REPORT INFORMATION
  Report Type: Report from Study
  Country: US (occurrence: US)
  Receive Date: 20220714
  Receipt Date: 20231017
  Transmission Date: 20240110
  Serious: Yes (Other)
  Sender: FDA-Public Use
  Company Number: US-ABBVIE-22K-163-4431698-00

PATIENT
  Age: 26 Year
  Sex: Male

DRUGS (5)
  1. HUMIRA [Suspect]
     Active Substance: ADALIMUMAB
     Indication: Hidradenitis
     Dosage: CITRATE FREE;? FORM STRENGTH: 40MG
     Route: 058
  2. HUMIRA [Suspect]
     Active Substance: ADALIMUMAB
     Dosage: CITRATE FREE;? FORM STRENGTH: 40MG
     Route: 058
     Dates: start: 2019
  3. HUMIRA [Suspect]
     Active Substance: ADALIMUMAB
     Dosage: CITRATE FREE;? FORM STRENGTH: 40MG
     Route: 058
  4. HUMIRA [Suspect]
     Active Substance: ADALIMUMAB
     Dosage: FORM STRENGTH: 40 MG;?CITRATE FREE
     Route: 058
  5. HUMIRA [Suspect]
     Active Substance: ADALIMUMAB
     Dosage: FORM STRENGTH: 40 MG;?CITRATE FREE
     Route: 058

REACTIONS (21)
  - Seizure [Recovering/Resolving]
  - Hypersomnia [Unknown]
  - Bruxism [Not Recovered/Not Resolved]
  - Skin disorder [Recovered/Resolved]
  - Agitation [Unknown]
  - Drooling [Not Recovered/Not Resolved]
  - Tympanic membrane perforation [Unknown]
  - Pruritus [Unknown]
  - Ear infection staphylococcal [Unknown]
  - Otorrhoea [Recovering/Resolving]
  - Urinary tract infection [Unknown]
  - Intentional self-injury [Not Recovered/Not Resolved]
  - Wound haemorrhage [Unknown]
  - Ear pruritus [Unknown]
  - Platelet count decreased [Unknown]
  - Fatigue [Not Recovered/Not Resolved]
  - Hidradenitis [Unknown]
  - Skin haemorrhage [Recovered/Resolved]
  - Speech disorder [Unknown]
  - Vomiting [Unknown]
  - Dyspepsia [Unknown]

NARRATIVE: CASE EVENT DATE: 20220101
